FAERS Safety Report 6189409-6 (Version None)
Quarter: 2009Q2

REPORT INFORMATION
  Report Type: 
  Country: None (occurrence: None)
  Receive Date: 20090512
  Receipt Date: 20090505
  Transmission Date: 20091009
  Serious: Yes (Hospitalization)
  Sender: FDA-Public Use
  Company Number: 2009SP006119

PATIENT

DRUGS (2)
  1. CELESTENE CHRONODOSE [Suspect]
     Indication: FOETAL GROWTH RETARDATION
     Dosage: ; TRPL
     Route: 064
     Dates: start: 20090224
  2. CELESTENE CHRONODOSE [Suspect]
     Indication: FOETAL GROWTH RETARDATION
     Dosage: ; TRPL
     Route: 064
     Dates: start: 20090225

REACTIONS (2)
  - MATERNAL DRUGS AFFECTING FOETUS [None]
  - TACHYCARDIA FOETAL [None]
